FAERS Safety Report 17294349 (Version 1)
Quarter: 2020Q1

REPORT INFORMATION
  Report Type: Spontaneous
  Country: US (occurrence: US)
  Receive Date: 20200120
  Receipt Date: 20200120
  Transmission Date: 20200409
  Serious: Yes (Other)
  Sender: FDA-Public Use
  Company Number: None

PATIENT
  Age: 15 Year
  Sex: Female
  Weight: 62.6 kg

DRUGS (2)
  1. SERTRALINE 100 MG PO DAILY [Suspect]
     Active Substance: SERTRALINE HYDROCHLORIDE
     Dates: start: 20191203
  2. QUETIAPINE EXTENDED RELEASE [Suspect]
     Active Substance: QUETIAPINE
     Indication: BIPOLAR DISORDER
     Route: 048
     Dates: start: 20191201, end: 20200114

REACTIONS (3)
  - Breast discharge [None]
  - Hyperprolactinaemia [None]
  - Galactorrhoea [None]

NARRATIVE: CASE EVENT DATE: 20200114
